FAERS Safety Report 7295069-3 (Version None)
Quarter: 2011Q1

REPORT INFORMATION
  Report Type: 
  Country: None (occurrence: None)
  Receive Date: 20110216
  Receipt Date: 20110208
  Transmission Date: 20110831
  Serious: Yes (Hospitalization)
  Sender: FDA-Public Use
  Company Number: US-JNJFOC-20101102747

PATIENT
  Sex: Male
  Weight: 59.9 kg

DRUGS (5)
  1. INFLIXIMAB, RECOMBINANT [Suspect]
     Indication: CROHN'S DISEASE
     Route: 042
  2. ANTIBIOTICS [Suspect]
     Indication: INFLAMMATORY BOWEL DISEASE
  3. PREDNISONE [Suspect]
     Indication: CROHN'S DISEASE
  4. HUMIRA [Concomitant]
  5. CIMZIA [Concomitant]

REACTIONS (2)
  - CROHN'S DISEASE [None]
  - CLOSTRIDIAL INFECTION [None]
